FAERS Safety Report 4288774-4 (Version None)
Quarter: 2004Q1

REPORT INFORMATION
  Report Type: 
  Country: None (occurrence: None)
  Receive Date: 20040205
  Receipt Date: 20040119
  Transmission Date: 20041129
  Serious: Yes (Hospitalization)
  Sender: FDA-Public Use
  Company Number: A01200400248

PATIENT
  Age: 73 Year
  Sex: Female

DRUGS (8)
  1. PLAVIX [Suspect]
     Indication: ANGINA UNSTABLE
     Dosage: 75 MG QD, ORAL
     Route: 048
     Dates: start: 20031028, end: 20031111
  2. ALBYL-E (ACETYLSALICYLIC ACID) - 75 MG [Suspect]
     Indication: ANGINA UNSTABLE
     Dosage: 75 MG OD, ORAL
     Route: 048
     Dates: start: 20031028, end: 20031111
  3. KLEXANE - (HEPARIN-FRACTION, SODIUM SALT) - 60 MG - 20 MG [Suspect]
     Indication: ANGINA UNSTABLE
     Dosage: 60 MG BID / 20 MG QD, SUBCUTANEOUS
     Route: 058
     Dates: start: 20031028, end: 20031109
  4. KLEXANE - (HEPARIN-FRACTION, SODIUM SALT) - 60 MG - 20 MG [Suspect]
     Indication: ANGINA UNSTABLE
     Dosage: 60 MG BID / 20 MG QD, SUBCUTANEOUS
     Route: 058
     Dates: start: 20031110
  5. SELO-ZOK (METOPROLOL SUCCINATE) [Concomitant]
  6. CIPRAMIL (CITALOPRAM HYDROBROMIDE) [Concomitant]
  7. PRAVACHOL [Concomitant]
  8. LEVAXIN (LEVOTHYROXINE SODIUM) [Concomitant]

REACTIONS (3)
  - ANAEMIA [None]
  - COAGULOPATHY [None]
  - HAEMATOMA [None]
